FAERS Safety Report 8937201 (Version 1)
Quarter: 2012Q4

REPORT INFORMATION
  Report Type: Spontaneous
  Country: US (occurrence: None)
  Receive Date: 20121128
  Receipt Date: 20121128
  Transmission Date: 20130627
  Serious: Yes (Hospitalization)
  Sender: FDA-Public Use
  Company Number: None

PATIENT
  Age: 76 Year
  Sex: Female
  Weight: 60.3 kg

DRUGS (8)
  1. ADVIL [Suspect]
     Indication: BACK PAIN
     Dosage: ?     ?     PO
RECENT INTERMITTENT  USE
     Route: 048
  2. ALEVE [Suspect]
     Indication: BACK PAIN
     Dosage: ?   ?   PO
RECENT INTERMITTENT USE
     Route: 048
  3. MICARDIS [Concomitant]
  4. TOPROL XL [Concomitant]
  5. CRESTOR [Concomitant]
  6. NORVASC [Concomitant]
  7. TYLENOR XL [Concomitant]
  8. SYSTANE OPTHALMIC SOLN [Concomitant]

REACTIONS (3)
  - Duodenitis [None]
  - Upper gastrointestinal haemorrhage [None]
  - Haematocrit decreased [None]
